FAERS Safety Report 8573318-9 (Version None)
Quarter: 2012Q2

REPORT INFORMATION
  Report Type: 
  Country: None (occurrence: None)
  Receive Date: 20120423
  Receipt Date: 20090630
  Transmission Date: 20120825
  Serious: Yes (Other)
  Sender: FDA-Public Use
  Company Number: PHEH2009US06911

PATIENT
  Sex: Male

DRUGS (1)
  1. EXJADE [Suspect]
     Indication: BLOOD DISORDER
     Dosage: 500 MG, BID, ORAL
     Route: 048
     Dates: start: 20090313

REACTIONS (1)
  - HAEMATOCRIT DECREASED [None]
